FAERS Safety Report 8297834-2 (Version None)
Quarter: 2012Q2

REPORT INFORMATION
  Report Type: 
  Country: None (occurrence: None)
  Receive Date: 20120419
  Receipt Date: 20120414
  Transmission Date: 20120825
  Serious: No
  Sender: FDA-Public Use
  Company Number: CO-SANOFI-AVENTIS-2012SA026417

PATIENT
  Age: 28 Year
  Sex: Female

DRUGS (5)
  1. CODEINE SULFATE [Concomitant]
     Dates: end: 20120413
  2. AMITRIPTYLINE HCL [Concomitant]
     Dates: end: 20120413
  3. METHOTREXATE [Concomitant]
     Indication: RHEUMATOID ARTHRITIS
     Dates: end: 20120413
  4. ARAVA [Suspect]
     Route: 048
     Dates: end: 20120413
  5. OMEPRAZOLE [Concomitant]
     Route: 048
     Dates: end: 20120413

REACTIONS (1)
  - MATERNAL EXPOSURE DURING PREGNANCY [None]
